FAERS Safety Report 9431931 (Version 1)
Quarter: 2013Q3

REPORT INFORMATION
  Report Type: Spontaneous
  Country: IT (occurrence: IT)
  Receive Date: 20130731
  Receipt Date: 20130731
  Transmission Date: 20140515
  Serious: Yes (Hospitalization)
  Sender: FDA-Public Use
  Company Number: PHHY2013IT080480

PATIENT
  Sex: Male

DRUGS (1)
  1. VOLTAREN [Suspect]
     Indication: BACK PAIN
     Dosage: 1 DF, TOTAL
     Route: 030
     Dates: start: 20130720, end: 20130720

REACTIONS (2)
  - Cellulitis [Recovering/Resolving]
  - Injection site abscess [Recovering/Resolving]
